FAERS Safety Report 18284037 (Version 1)
Quarter: 2020Q3

REPORT INFORMATION
  Report Type: Spontaneous
  Country: AT (occurrence: AT)
  Receive Date: 20200918
  Receipt Date: 20200918
  Transmission Date: 20201103
  Serious: Yes (Other)
  Sender: FDA-Public Use
  Company Number: AT-TEVA-2020-AT-1828669

PATIENT
  Age: 44 Year

DRUGS (8)
  1. SOLUBLE L?DOPA [Concomitant]
     Indication: PARKINSON^S DISEASE
  2. ROTIGOTINE  PATCH [Concomitant]
     Indication: PARKINSON^S DISEASE
     Dosage: 7 MG IN TOTAL
  3. AMANTADINE. [Concomitant]
     Active Substance: AMANTADINE HYDROCHLORIDE
     Indication: PARKINSON^S DISEASE
     Dosage: 100 MG
  4. DOMPERIDONE [Concomitant]
     Active Substance: DOMPERIDONE
     Indication: PROPHYLAXIS
     Dosage: 3 X 10 MG
  5. ROPINIROLE. [Suspect]
     Active Substance: ROPINIROLE
     Indication: PARKINSON^S DISEASE
     Dosage: DAILY DOSAGE OF A MAXIMUM OF 24 MG
     Route: 065
  6. RASAGILINE MESILATE [Suspect]
     Active Substance: RASAGILINE MESYLATE
     Indication: PARKINSON^S DISEASE
     Route: 065
  7. APOMORPHIN [Concomitant]
     Active Substance: APOMORPHINE HYDROCHLORIDE
     Indication: PARKINSON^S DISEASE
     Dosage: INITIAL ADMINISTRATION OF 1 MG APOMORPHINE; A TOTAL DOSE OF 4 MG
     Route: 058
  8. L?DOPA WITH ENTACAPONE [Concomitant]
     Indication: PARKINSON^S DISEASE

REACTIONS (9)
  - Anxiety [Unknown]
  - Impulse-control disorder [Unknown]
  - Depression [Unknown]
  - Muscle spasms [Unknown]
  - Gait inability [Unknown]
  - On and off phenomenon [Unknown]
  - Middle insomnia [Unknown]
  - Therapeutic response decreased [Unknown]
  - Gambling disorder [Unknown]
